FAERS Safety Report 7701741 (Version 7)
Quarter: 2017Q3

REPORT INFORMATION
  Report Type: Report from Study
  Country: IT (occurrence: IT)
  Receive Date: 20101209
  Receipt Date: 20170705
  Transmission Date: 20171128
  Serious: Yes (Other)
  Sender: FDA-Public Use
  Company Number: IT-ROCHE-537788

PATIENT

DRUGS (8)
  1. CETUXIMAB. [Suspect]
     Active Substance: CETUXIMAB
     Indication: COLORECTAL CANCER METASTATIC
     Dosage: 400 MG/M2 INITIAL DOSE, THEN 250 MG/M2/WEEK; CYCLES EVERY 4 WEEKS.
     Route: 065
  2. OXALIPLATIN. [Suspect]
     Active Substance: OXALIPLATIN
     Dosage: DAYS 8 AND 22, CYCLES EVERY 4 WEEKS
     Route: 065
  3. 5-FLUOROURACIL [Suspect]
     Active Substance: FLUOROURACIL
     Dosage: DAYS 1-2, 8-9, 15-16 AND 22-23
     Route: 065
  4. 5-FLUOROURACIL [Suspect]
     Active Substance: FLUOROURACIL
     Indication: COLORECTAL CANCER METASTATIC
     Dosage: TIMED-FLAT-INFUSION DAYS 1-2, 8-9, 15-16 AND 22-23
     Route: 065
  5. IRINOTECAN [Suspect]
     Active Substance: IRINOTECAN
     Indication: COLORECTAL CANCER METASTATIC
     Dosage: WEEK ALTERNATING DOSING, DAY 1 AND 15
     Route: 042
  6. BEVACIZUMAB. [Suspect]
     Active Substance: BEVACIZUMAB
     Indication: COLORECTAL CANCER METASTATIC
     Dosage: DAYS 1 AND 15, FORM: INFUSION
     Route: 042
  7. IRINOTECAN [Suspect]
     Active Substance: IRINOTECAN
     Dosage: DAYS 1 AND 15
     Route: 065
  8. OXALIPLATIN. [Suspect]
     Active Substance: OXALIPLATIN
     Indication: COLORECTAL CANCER METASTATIC
     Dosage: AT THREE INCREASING DOSING LEVELS (60-70-90 MG/M2) DAYS 8 AND 22 EVERY 4 WEEKS,
     Route: 042

REACTIONS (15)
  - Erythema [Unknown]
  - Neutropenia [Unknown]
  - Epistaxis [Unknown]
  - Mucosal inflammation [Unknown]
  - Diarrhoea [Unknown]
  - Hypertransaminasaemia [Unknown]
  - Alopecia [Unknown]
  - Neurotoxicity [Unknown]
  - Vomiting [Unknown]
  - Stomatitis [Unknown]
  - Thrombocytopenia [Unknown]
  - Hypertension [Unknown]
  - Hypokalaemia [Unknown]
  - Nausea [Unknown]
  - Asthenia [Unknown]
